FAERS Safety Report 9182961 (Version 1)
Quarter: 2013Q1

REPORT INFORMATION
  Report Type: Spontaneous
  Country: US (occurrence: US)
  Receive Date: 20130322
  Receipt Date: 20130322
  Transmission Date: 20140127
  Serious: No
  Sender: FDA-Public Use
  Company Number: US-BRISTOL-MYERS SQUIBB COMPANY-16945750

PATIENT
  Age: 23 Year
  Sex: Male

DRUGS (5)
  1. ERBITUX [Suspect]
     Indication: COLON CANCER
     Dosage: INF:3 21AUG2012
  2. FOLINIC ACID [Suspect]
  3. FLUOROURACIL [Suspect]
  4. IRINOTECAN [Suspect]
  5. NEXIUM [Concomitant]

REACTIONS (2)
  - Dermatitis bullous [Recovered/Resolved]
  - Dermatitis acneiform [Unknown]
